FAERS Safety Report 5776085-7 (Version None)
Quarter: 2008Q2

REPORT INFORMATION
  Report Type: 
  Country: None (occurrence: None)
  Receive Date: 20080613
  Receipt Date: 20080612
  Transmission Date: 20081010
  Serious: No
  Sender: FDA-Public Use
  Company Number: SPL200800019

PATIENT
  Age: 31 Year
  Sex: Female

DRUGS (2)
  1. LUBIPROSTONE [Suspect]
     Indication: CONSTIPATION
     Dosage: 0 UG OR 16 UG
     Dates: start: 20080513, end: 20080526
  2. PLACEBO [Suspect]

REACTIONS (2)
  - DRUG EXPOSURE DURING PREGNANCY [None]
  - PREGNANCY [None]
